FAERS Safety Report 4810028-5 (Version None)
Quarter: 2005Q4

REPORT INFORMATION
  Report Type: 
  Country: None (occurrence: None)
  Receive Date: 20051026
  Receipt Date: 20051014
  Transmission Date: 20060501
  Serious: Yes (Hospitalization)
  Sender: FDA-Public Use
  Company Number: US-BRISTOL-MYERS SQUIBB COMPANY-13145677

PATIENT
  Age: 70 Year
  Sex: Female
  Weight: 64 kg

DRUGS (13)
  1. CARBOPLATIN [Suspect]
     Indication: NON-SMALL CELL LUNG CANCER
     Dosage: AUC=5
     Route: 042
     Dates: start: 20050620, end: 20050620
  2. GEMCITABINE [Suspect]
     Indication: NON-SMALL CELL LUNG CANCER
     Route: 042
     Dates: start: 20050606, end: 20050606
  3. TAXOTERE [Suspect]
     Indication: NON-SMALL CELL LUNG CANCER
     Route: 042
     Dates: start: 20050620, end: 20050620
  4. RADIOTHERAPY [Suspect]
     Indication: NON-SMALL CELL LUNG CANCER
     Dosage: 180CGY
     Dates: start: 20050620, end: 20050630
  5. ATENOLOL [Concomitant]
     Indication: HYPERTENSION
  6. NEXIUM [Concomitant]
     Indication: GASTROOESOPHAGEAL REFLUX DISEASE
     Dates: start: 20000101
  7. COUMADIN [Concomitant]
     Indication: PROPHYLAXIS
     Dates: start: 20050401
  8. DEXAMETHASONE [Concomitant]
     Indication: PROPHYLAXIS
     Dates: start: 20050401
  9. EMEND [Concomitant]
     Indication: NAUSEA
     Dates: start: 20050501
  10. QUESTRAN [Concomitant]
     Indication: DIARRHOEA
     Dates: start: 20050501
  11. LASIX [Concomitant]
     Indication: OEDEMA
     Dates: start: 20050603
  12. POTASSIUM CHLORIDE [Concomitant]
     Indication: MINERAL SUPPLEMENTATION
     Dates: start: 20050602
  13. ZOFRAN [Concomitant]
     Indication: NAUSEA
     Dates: start: 20050502

REACTIONS (1)
  - CHRONIC OBSTRUCTIVE PULMONARY DISEASE [None]
